FAERS Safety Report 4547274-4 (Version None)
Quarter: 2005Q1

REPORT INFORMATION
  Report Type: 
  Country: None (occurrence: None)
  Receive Date: 20050105
  Receipt Date: 20041221
  Transmission Date: 20050727
  Serious: Yes (Hospitalization)
  Sender: FDA-Public Use
  Company Number: WAES 0412USA02614

PATIENT

DRUGS (2)
  1. OS TIMOPTIC [Suspect]
     Indication: OCULAR HYPERTENSION
     Dosage: OPHT
     Route: 047
     Dates: start: 19940831, end: 20041101
  2. XALATAN [Concomitant]

REACTIONS (2)
  - EXTRASYSTOLES [None]
  - MYOCARDIAL INFARCTION [None]
